FAERS Safety Report 15131225 (Version 1)
Quarter: 2018Q3

REPORT INFORMATION
  Report Type: Spontaneous
  Country: US (occurrence: US)
  Receive Date: 20180615
  Receipt Date: 20180615
  Transmission Date: 20181010
  Serious: Yes (Hospitalization)
  Sender: FDA-Public Use
  Company Number: None

PATIENT
  Age: 63 Year
  Sex: Female
  Weight: 90.3 kg

DRUGS (2)
  1. DOXORUBICIN HYDROCHLORIDE. [Suspect]
     Active Substance: DOXORUBICIN HYDROCHLORIDE
     Dates: end: 20180404
  2. CYCYLOPHOSHAMIDE [Suspect]
     Active Substance: CYCLOPHOSPHAMIDE
     Dates: end: 20180404

REACTIONS (5)
  - Ventricular hypokinesia [None]
  - Ventricular extrasystoles [None]
  - Palpitations [None]
  - Ejection fraction decreased [None]
  - Bundle branch block left [None]

NARRATIVE: CASE EVENT DATE: 20180420
